FAERS Safety Report 24643941 (Version 1)
Quarter: 2024Q4

REPORT INFORMATION
  Report Type: Spontaneous
  Country: JP (occurrence: JP)
  Receive Date: 20241120
  Receipt Date: 20241120
  Transmission Date: 20250114
  Serious: Yes (Other)
  Sender: GUERBET
  Company Number: JP-GUERBETG_JAPAN-JP-20240165

PATIENT
  Age: 75 Year
  Sex: Male

DRUGS (2)
  1. LIPIODOL [Suspect]
     Active Substance: ETHIODIZED OIL
     Indication: Therapeutic embolisation
     Dosage: A MIXTURE OF 17% N-BUTYL CYANOACRYLATE-LIPIODOL.
     Route: 042
  2. UNSPECIFIED INGREDIENT [Suspect]
     Active Substance: UNSPECIFIED INGREDIENT
     Indication: Therapeutic embolisation
     Dosage: A MIXTURE OF 17% N-BUTYL CYANOACRYLATE-LIPIODOL.
     Route: 042

REACTIONS (1)
  - Thrombosis [Unknown]
